FAERS Safety Report 24527120 (Version 1)
Quarter: 2024Q4

REPORT INFORMATION
  Report Type: Spontaneous
  Country: US (occurrence: US)
  Receive Date: 20241021
  Receipt Date: 20241021
  Transmission Date: 20250115
  Serious: No
  Sender: ROCHE
  Company Number: US-ROCHE-3464279

PATIENT
  Age: 64 Year
  Sex: Male

DRUGS (1)
  1. COTELLIC [Suspect]
     Active Substance: COBIMETINIB
     Indication: Metastases to lymph nodes
     Dosage: FREQUENCY TEXT:QD FOR 21 DAYS ON 7 DAYS OFF
     Route: 048

REACTIONS (2)
  - Rash [Unknown]
  - Pruritus [Unknown]
